FAERS Safety Report 9797827 (Version 1)
Quarter: 2014Q1

REPORT INFORMATION
  Report Type: Spontaneous
  Country: FR (occurrence: FR)
  Receive Date: 20140106
  Receipt Date: 20140106
  Transmission Date: 20141002
  Serious: Yes (Other)
  Sender: FDA-Public Use
  Company Number: FR-JNJFOC-20131217416

PATIENT
  Age: 63 Year
  Sex: Male

DRUGS (1)
  1. KETODERM [Suspect]
     Indication: DERMATOPHYTOSIS
     Route: 003
     Dates: start: 20131106

REACTIONS (2)
  - Eczema [Recovered/Resolved]
  - Eosinophilia [Recovered/Resolved]
